FAERS Safety Report 4682831-6 (Version None)
Quarter: 2005Q2

REPORT INFORMATION
  Report Type: 
  Country: None (occurrence: None)
  Receive Date: 20050531
  Receipt Date: 20050128
  Transmission Date: 20051028
  Serious: Yes (Other)
  Sender: FDA-Public Use
  Company Number: 200510725US

PATIENT
  Age: 39 Year
  Sex: Male

DRUGS (2)
  1. LOVENOX [Suspect]
     Dosage: IV
     Route: 042
  2. GLYCERYL TRINITRATE (NITRO) [Concomitant]

REACTIONS (1)
  - THROMBOSIS [None]
